FAERS Safety Report 8391650-9 (Version None)
Quarter: 2012Q2

REPORT INFORMATION
  Report Type: 
  Country: None (occurrence: None)
  Receive Date: 20120529
  Receipt Date: 20120521
  Transmission Date: 20120825
  Serious: Yes (Other)
  Sender: FDA-Public Use
  Company Number: US-BAYER-2012-051558

PATIENT
  Age: 39 Year
  Sex: Female
  Weight: 84.807 kg

DRUGS (5)
  1. BEYAZ [Suspect]
     Route: 048
  2. STEROID [Concomitant]
     Indication: TEMPOROMANDIBULAR JOINT SYNDROME
  3. YASMIN [Suspect]
     Route: 048
  4. YAZ [Suspect]
     Route: 048
  5. MUSCLE RELAXANTS [Concomitant]

REACTIONS (4)
  - TRANSIENT ISCHAEMIC ATTACK [None]
  - RETINAL ARTERY OCCLUSION [None]
  - CAROTID ARTERIOSCLEROSIS [None]
  - CAROTID ARTERY STENOSIS [None]
